APPROVED DRUG PRODUCT: DESVENLAFAXINE SUCCINATE
Active Ingredient: DESVENLAFAXINE SUCCINATE
Strength: EQ 50MG BASE
Dosage Form/Route: TABLET, EXTENDED RELEASE;ORAL
Application: A204020 | Product #001 | TE Code: AB
Applicant: ZYDUS PHARMACEUTICALS USA INC
Approved: Oct 11, 2017 | RLD: No | RS: No | Type: RX